FAERS Safety Report 8110738-0 (Version None)
Quarter: 2012Q1

REPORT INFORMATION
  Report Type: 
  Country: None (occurrence: None)
  Receive Date: 20120203
  Receipt Date: 20120125
  Transmission Date: 20120608
  Serious: Yes (Hospitalization)
  Sender: FDA-Public Use
  Company Number: US-GENZYME-FABR-1002347

PATIENT
  Sex: Female
  Weight: 65 kg

DRUGS (1)
  1. FABRAZYME [Suspect]
     Indication: FABRY'S DISEASE
     Dosage: 65 MG, Q2W
     Route: 042
     Dates: start: 20070301

REACTIONS (3)
  - FALL [None]
  - EAR PAIN [None]
  - CARDIAC DISORDER [None]
